FAERS Safety Report 17053782 (Version 2)
Quarter: 2019Q4

REPORT INFORMATION
  Report Type: Spontaneous
  Country: DE (occurrence: DE)
  Receive Date: 20191120
  Receipt Date: 20191126
  Transmission Date: 20200122
  Serious: Yes (Congenital Anomaly)
  Sender: FDA-Public Use
  Company Number: DE-MYLANLABS-2019M1110486

PATIENT
  Sex: Male
  Weight: 2.89 kg

DRUGS (6)
  1. LEVETIRACETAM. [Suspect]
     Active Substance: LEVETIRACETAM
     Dosage: 2000 MILLIGRAM, QD, MATERNAL DOSE: 2000 MG, QD
     Route: 064
  2. ERYTHROMYCIN. [Concomitant]
     Active Substance: ERYTHROMYCIN
     Dosage: UNK
     Route: 064
  3. ERYTHROMYCIN. [Concomitant]
     Active Substance: ERYTHROMYCIN
     Indication: ACNE
     Dosage: UNK
     Route: 064
     Dates: start: 201108, end: 201111
  4. FOLIO FORTE [Concomitant]
     Active Substance: FOLIC ACID\VITAMINS
     Indication: PROPHYLAXIS OF NEURAL TUBE DEFECT
     Dosage: 0.8 MILLIGRAM, QD, DOSE: 0.8MG/DAY
     Route: 064
     Dates: start: 20110518, end: 20120204
  5. FOLIO FORTE [Concomitant]
     Active Substance: FOLIC ACID\VITAMINS
     Dosage: UNK, MATERNAL DOSE: UNK
     Route: 064
  6. LEVETIRACETAM. [Suspect]
     Active Substance: LEVETIRACETAM
     Indication: EPILEPSY
     Dosage: 1000-0-1000
     Route: 064
     Dates: start: 20110518, end: 20120204

REACTIONS (4)
  - Scoliosis [Not Recovered/Not Resolved]
  - Foetal exposure during pregnancy [Recovered/Resolved]
  - Plagiocephaly [Not Recovered/Not Resolved]
  - Hemivertebra [Not Recovered/Not Resolved]

NARRATIVE: CASE EVENT DATE: 20110518
